FAERS Safety Report 16203742 (Version 1)
Quarter: 2019Q2

REPORT INFORMATION
  Report Type: Report from Study
  Country: HN (occurrence: HN)
  Receive Date: 20190416
  Receipt Date: 20190416
  Transmission Date: 20190711
  Serious: Yes (Other)
  Sender: FDA-Public Use
  Company Number: PHHY2019HN086287

PATIENT
  Sex: Female

DRUGS (1)
  1. EXFORGE [Suspect]
     Active Substance: AMLODIPINE BESYLATE\VALSARTAN
     Indication: PRODUCT USED FOR UNKNOWN INDICATION
     Dosage: (AMLODIPINE 5 MG, VALSARTAN 320 MG)
     Route: 065

REACTIONS (4)
  - Diabetes mellitus [Unknown]
  - Blood pressure abnormal [Unknown]
  - Visual impairment [Unknown]
  - Hypoacusis [Unknown]
